FAERS Safety Report 18796966 (Version 2)
Quarter: 2021Q1

REPORT INFORMATION
  Report Type: Spontaneous
  Country: IL (occurrence: IL)
  Receive Date: 20210128
  Receipt Date: 20210208
  Transmission Date: 20210419
  Serious: No
  Sender: FDA-Public Use
  Company Number: IL-SA-2021SA022208

PATIENT
  Age: 20 Year
  Sex: Female

DRUGS (6)
  1. DUPILUMAB [Suspect]
     Active Substance: DUPILUMAB
     Dosage: 300 MG, QOW
  2. SINGULAIR [Concomitant]
     Active Substance: MONTELUKAST SODIUM
     Indication: ASTHMA
  3. DUPILUMAB [Suspect]
     Active Substance: DUPILUMAB
     Indication: DERMATITIS ATOPIC
     Dosage: 600 MG, 1X
     Dates: start: 20200910, end: 20200910
  4. SINGULAIR [Concomitant]
     Active Substance: MONTELUKAST SODIUM
     Indication: RHINITIS ALLERGIC
  5. BILASTINE [Concomitant]
     Active Substance: BILASTINE
     Indication: RHINITIS ALLERGIC
  6. BILASTINE [Concomitant]
     Active Substance: BILASTINE
     Indication: ASTHMA

REACTIONS (9)
  - Asthma [Unknown]
  - Headache [Unknown]
  - Oropharyngeal pain [Unknown]
  - Asthenia [Unknown]
  - SARS-CoV-2 test positive [Unknown]
  - COVID-19 [Unknown]
  - Pyrexia [Unknown]
  - Pain in extremity [Unknown]
  - Therapeutic response decreased [Unknown]

NARRATIVE: CASE EVENT DATE: 20201123
